FAERS Safety Report 9261306 (Version 1)
Quarter: 2013Q1

REPORT INFORMATION
  Report Type: Spontaneous
  Country: US (occurrence: None)
  Receive Date: 20121212
  Receipt Date: 20121212
  Transmission Date: 20140127
  Serious: No
  Sender: FDA-Public Use
  Company Number: 1209USA002022

PATIENT
  Age: 47 Year
  Sex: Female

DRUGS (3)
  1. VICTRELIS [Suspect]
     Indication: HEPATITIS C
  2. REBETOL [Suspect]
     Indication: HEPATITIS C
  3. PEGASYS (PEGINTERFERON ALFA-2A) [Concomitant]

REACTIONS (6)
  - Dysphonia [None]
  - Malaise [None]
  - Stomatitis [None]
  - Nausea [None]
  - Vomiting [None]
  - Drug dose omission [None]
